FAERS Safety Report 9671405 (Version 1)
Quarter: 2013Q4

REPORT INFORMATION
  Report Type: Spontaneous
  Country: US (occurrence: US)
  Receive Date: 20131106
  Receipt Date: 20131106
  Transmission Date: 20140711
  Serious: Yes (Other)
  Sender: FDA-Public Use
  Company Number: US-PFIZER INC-2013314652

PATIENT
  Age: 75 Year
  Sex: Male
  Weight: 74.83 kg

DRUGS (7)
  1. NEURONTIN [Suspect]
     Indication: DIABETIC NEUROPATHY
     Dosage: 300 MG, 4X/DAY
  2. NEURONTIN [Suspect]
     Dosage: 300 MG, UNK
  3. NEURONTIN [Suspect]
     Dosage: 9 DF, UNK
  4. NEURONTIN [Suspect]
     Dosage: UNK (4 TABLETS, TITRATION AT 6 TABLETS, THEN AT 7 TABLETS, THEN 9 TABLETS, ALL AT UNKNOWN FREQUENCY)
  5. NEURONTIN [Suspect]
     Dosage: UNK
  6. VALIUM [Suspect]
     Indication: INSOMNIA
     Dosage: UNK
  7. INSULIN [Concomitant]
     Indication: TYPE 1 DIABETES MELLITUS
     Dosage: UNK

REACTIONS (6)
  - Cardiac disorder [Unknown]
  - Insomnia [Unknown]
  - Burning sensation [Unknown]
  - Feeling abnormal [Unknown]
  - Intentional drug misuse [Unknown]
  - Drug ineffective [Unknown]
